FAERS Safety Report 4488963-X (Version None)
Quarter: 2004Q4

REPORT INFORMATION
  Report Type: 
  Country: None (occurrence: None)
  Receive Date: 20041029
  Receipt Date: 20040930
  Transmission Date: 20050328
  Serious: Yes (Hospitalization)
  Sender: FDA-Public Use
  Company Number: 200417462US

PATIENT
  Age: 40 Year
  Sex: 0
  Weight: 68.2 kg

DRUGS (1)
  1. KETEK [Suspect]
     Indication: BRONCHITIS CHRONIC
     Route: 048

REACTIONS (2)
  - COUGH [None]
  - DYSPNOEA [None]
